FAERS Safety Report 4307419-8 (Version None)
Quarter: 2004Q1

REPORT INFORMATION
  Report Type: 
  Country: None (occurrence: None)
  Receive Date: 20040226
  Receipt Date: 20040216
  Transmission Date: 20041129
  Serious: Yes (Hospitalization)
  Sender: FDA-Public Use
  Company Number: 2004010523

PATIENT
  Age: 74 Year
  Sex: Female

DRUGS (4)
  1. AMLODIPINE [Suspect]
     Indication: HYPERTENSION
     Dosage: 5 MG (DAILY), ORAL
     Route: 048
     Dates: start: 19951019, end: 20030801
  2. OMEPRAZOLE [Concomitant]
  3. AMILORIDE HCL AND HYDROCHLOROTHIAIZDE [Concomitant]
  4. LEVOTHYROXINE SODIUM [Concomitant]

REACTIONS (3)
  - BACK PAIN [None]
  - BLOOD PRESSURE DECREASED [None]
  - EXOSTOSIS [None]
